FAERS Safety Report 6286740 (Version 2)
Quarter: 2013Q2

REPORT INFORMATION
  Report Type: Report from Study
  Country: CN (occurrence: CN)
  Receive Date: 20070412
  Receipt Date: 20130604
  Transmission Date: 20140414
  Serious: Yes (Other)
  Sender: FDA-Public Use
  Company Number: CN-ROCHE-491232

PATIENT
  Age: 48 Year
  Sex: 0
  Weight: 53.5 kg

DRUGS (5)
  1. CELLCEPT [Suspect]
     Indication: RENAL TRANSPLANT
     Route: 048
  2. CELLCEPT [Suspect]
     Route: 048
  3. CICLOSPORIN A [Concomitant]
     Indication: RENAL TRANSPLANT
     Route: 048
  4. PREDNISONE [Concomitant]
     Indication: RENAL TRANSPLANT
     Route: 048
  5. SANDIMMUN NEORAL [Concomitant]
     Indication: RENAL TRANSPLANT
     Route: 048
     Dates: start: 20050720

REACTIONS (4)
  - Osteonecrosis [Not Recovered/Not Resolved]
  - Arthralgia [Not Recovered/Not Resolved]
  - Diarrhoea [Not Recovered/Not Resolved]
  - Weight decreased [Unknown]
